FAERS Safety Report 25101680 (Version 1)
Quarter: 2025Q1

REPORT INFORMATION
  Report Type: Spontaneous
  Country: HR (occurrence: HR)
  Receive Date: 20250320
  Receipt Date: 20250320
  Transmission Date: 20250408
  Serious: Yes (Other)
  Sender: SANDOZ
  Company Number: HR-SANDOZ-SDZ2025HR016697

PATIENT
  Sex: Female

DRUGS (4)
  1. RAMIPRIL [Suspect]
     Active Substance: RAMIPRIL
     Indication: Hypertension
     Route: 065
     Dates: start: 202009
  2. RAMIPRIL [Suspect]
     Active Substance: RAMIPRIL
     Route: 065
     Dates: start: 202105
  3. AMLODIPINE\RAMIPRIL [Suspect]
     Active Substance: AMLODIPINE\RAMIPRIL
     Route: 065
     Dates: start: 202012
  4. AMLODIPINE\RAMIPRIL [Suspect]
     Active Substance: AMLODIPINE\RAMIPRIL
     Indication: Hypertension
     Route: 065
     Dates: start: 202010

REACTIONS (2)
  - Blood pressure increased [Unknown]
  - Product prescribing issue [Unknown]

NARRATIVE: CASE EVENT DATE: 20201201
